FAERS Safety Report 12886678 (Version 2)
Quarter: 2016Q4

REPORT INFORMATION
  Report Type: Spontaneous
  Country: US (occurrence: US)
  Receive Date: 20161026
  Receipt Date: 20161101
  Transmission Date: 20170207
  Serious: Yes (Other)
  Sender: FDA-Public Use
  Company Number: US-GE HEALTHCARE MEDICAL DIAGNOSTICS-OPTN-PR-1610S-0004

PATIENT
  Age: 48 Year
  Sex: Male
  Weight: 55.4 kg

DRUGS (3)
  1. OPTISON [Suspect]
     Active Substance: ALBUMIN HUMAN
     Indication: THERAPEUTIC PROCEDURE
  2. OPTISON [Suspect]
     Active Substance: ALBUMIN HUMAN
     Indication: BIOPSY KIDNEY
     Route: 042
     Dates: start: 20161020, end: 20161020
  3. OPTISON [Suspect]
     Active Substance: ALBUMIN HUMAN
     Indication: BLOOD CREATININE INCREASED

REACTIONS (1)
  - Post procedural haemorrhage [Recovering/Resolving]

NARRATIVE: CASE EVENT DATE: 20161020
